FAERS Safety Report 23702623 (Version 1)
Quarter: 2024Q2

REPORT INFORMATION
  Report Type: Report from Study
  Country: BR (occurrence: BR)
  Receive Date: 20240403
  Receipt Date: 20240403
  Transmission Date: 20240715
  Serious: Yes (Death)
  Sender: FDA-Public Use
  Company Number: BR-PFIZER INC-PV202400042571

PATIENT
  Age: 53 Year
  Sex: Female

DRUGS (3)
  1. FLUCONAZOLE [Interacting]
     Active Substance: FLUCONAZOLE
     Dosage: UNK
  2. DICLOFENAC [Interacting]
     Active Substance: DICLOFENAC
     Dosage: UNK
  3. ACETAMINOPHEN [Interacting]
     Active Substance: ACETAMINOPHEN
     Dosage: UNK

REACTIONS (7)
  - Death [Fatal]
  - Intentional product misuse [Fatal]
  - Drug interaction [Fatal]
  - Decreased appetite [Unknown]
  - Asthenia [Unknown]
  - Abdominal pain [Unknown]
  - Jaundice [Unknown]
